FAERS Safety Report 10456063 (Version 1)
Quarter: 2014Q3

REPORT INFORMATION
  Report Type: Spontaneous
  Country: US (occurrence: None)
  Receive Date: 20140915
  Receipt Date: 20140915
  Transmission Date: 20150326
  Serious: No
  Sender: FDA-Public Use
  Company Number: None

PATIENT
  Sex: Female

DRUGS (1)
  1. HUMIRA [Suspect]
     Active Substance: ADALIMUMAB
     Indication: PSORIASIS
     Dosage: 40MG, QOW, SQ
     Dates: start: 201407, end: 201409

REACTIONS (7)
  - Contusion [None]
  - Headache [None]
  - Vision blurred [None]
  - Localised infection [None]
  - Purulence [None]
  - Petechiae [None]
  - Skin exfoliation [None]
